FAERS Safety Report 4673195-2 (Version None)
Quarter: 2005Q2

REPORT INFORMATION
  Report Type: 
  Country: None (occurrence: None)
  Receive Date: 20050525
  Receipt Date: 20040520
  Transmission Date: 20051028
  Serious: No
  Sender: FDA-Public Use
  Company Number: US-GLAXOSMITHKLINE-A0511631A

PATIENT
  Age: 64 Year
  Sex: Female

DRUGS (4)
  1. BACTROBAN [Suspect]
     Indication: SKIN INFECTION
     Dosage: 30G TWICE PER DAY
     Route: 061
     Dates: start: 20040517, end: 20040518
  2. ARGATROBAN [Concomitant]
  3. MULTI-VITAMIN [Concomitant]
  4. CALCIUM GLUCONATE [Concomitant]

REACTIONS (4)
  - BLISTER [None]
  - ERYTHEMA [None]
  - SKIN BURNING SENSATION [None]
  - SWELLING [None]
